FAERS Safety Report 7854147-8 (Version None)
Quarter: 2011Q3

REPORT INFORMATION
  Report Type: 
  Country: None (occurrence: None)
  Receive Date: 20110916
  Receipt Date: 20110504
  Transmission Date: 20111222
  Serious: Yes (Other)
  Sender: FDA-Public Use
  Company Number: 2009-196721-NL

PATIENT
  Age: 28 Year
  Sex: Female
  Weight: 67.1324 kg

DRUGS (1)
  1. IMPLANON [Suspect]
     Indication: CONTRACEPTION
     Dosage: SBDE
     Route: 059
     Dates: start: 20090507

REACTIONS (3)
  - MENSTRUATION IRREGULAR [None]
  - IMPLANT SITE SWELLING [None]
  - INFERTILITY [None]
